FAERS Safety Report 9330303 (Version 1)
Quarter: 2013Q2

REPORT INFORMATION
  Report Type: Spontaneous
  Country: US (occurrence: US)
  Receive Date: 20130605
  Receipt Date: 20130605
  Transmission Date: 20140414
  Serious: No
  Sender: FDA-Public Use
  Company Number: US-B.I. PHARMACEUTICALS,INC./RIDGEFIELD-2013-BI-15525BP

PATIENT
  Sex: Male
  Weight: 98 kg

DRUGS (12)
  1. PRADAXA [Suspect]
     Indication: ATRIAL FIBRILLATION
     Dosage: 300 MG
     Route: 048
     Dates: start: 201101
  2. LISINOPRIL [Concomitant]
     Indication: HYPERTENSION
     Dosage: 20 MG
     Route: 048
     Dates: start: 2011
  3. AMIODARONE [Concomitant]
     Indication: CARDIAC DISORDER
     Dosage: 200 MG
     Route: 048
     Dates: start: 201201
  4. THYROXINE [Concomitant]
     Indication: HYPOTHYROIDISM
     Dosage: 50 MCG
     Route: 048
     Dates: start: 2011
  5. VITAMIN SUPPLIMENTS [Concomitant]
     Indication: MEDICAL DIET
     Route: 048
  6. BLOOD THINNER [Concomitant]
     Route: 048
     Dates: start: 2011
  7. TRAMADOL [Concomitant]
     Indication: BACK PAIN
     Route: 048
  8. OMEGA 3 [Concomitant]
     Route: 048
  9. VITAMIN C [Concomitant]
     Route: 048
  10. VITAMIN D [Concomitant]
     Route: 048
  11. POTASSIUM [Concomitant]
     Route: 048
  12. COQ10 [Concomitant]
     Route: 048

REACTIONS (6)
  - Back pain [Not Recovered/Not Resolved]
  - Haemorrhoids [Not Recovered/Not Resolved]
  - Dizziness [Not Recovered/Not Resolved]
  - Hypoaesthesia [Not Recovered/Not Resolved]
  - Weight increased [Not Recovered/Not Resolved]
  - Pain in extremity [Not Recovered/Not Resolved]
